FAERS Safety Report 13376015 (Version 1)
Quarter: 2017Q1

REPORT INFORMATION
  Report Type: Spontaneous
  Country: US (occurrence: US)
  Receive Date: 20170328
  Receipt Date: 20170328
  Transmission Date: 20170429
  Serious: Yes (Other)
  Sender: FDA-Public Use
  Company Number: US-TEVA-753011USA

PATIENT
  Age: 82 Year

DRUGS (2)
  1. FLUOROURACIL. [Suspect]
     Active Substance: FLUOROURACIL
     Indication: COLORECTAL ADENOCARCINOMA
     Dosage: FOLFOX THERAPY
     Route: 065
  2. OXALIPLATIN INJECTION [Suspect]
     Active Substance: OXALIPLATIN
     Indication: COLORECTAL ADENOCARCINOMA
     Dosage: FOLFOX THERAPY
     Route: 065

REACTIONS (1)
  - Myelodysplastic syndrome [Unknown]
